FAERS Safety Report 14543568 (Version 1)
Quarter: 2018Q1

REPORT INFORMATION
  Report Type: Spontaneous
  Country: US (occurrence: US)
  Receive Date: 20180216
  Receipt Date: 20180216
  Transmission Date: 20180509
  Serious: Yes (Death)
  Sender: FDA-Public Use
  Company Number: US-JNJFOC-20180220714

PATIENT
  Sex: Male

DRUGS (12)
  1. RITUXIMAB. [Concomitant]
     Active Substance: RITUXIMAB
  2. GRANISETRON [Concomitant]
     Active Substance: GRANISETRON
  3. FOLIC ACID. [Concomitant]
     Active Substance: FOLIC ACID
  4. DEXAMETHASONE. [Concomitant]
     Active Substance: DEXAMETHASONE
  5. DIPHENHYDRAMINE. [Concomitant]
     Active Substance: DIPHENHYDRAMINE
  6. GABAPENTIN. [Concomitant]
     Active Substance: GABAPENTIN
  7. IMBRUVICA [Suspect]
     Active Substance: IBRUTINIB
     Indication: PRODUCT USED FOR UNKNOWN INDICATION
     Route: 065
  8. HYDROCODONE [Concomitant]
     Active Substance: HYDROCODONE
  9. ONDANSETRON [Concomitant]
     Active Substance: ONDANSETRON
  10. RANITIDINE. [Concomitant]
     Active Substance: RANITIDINE
  11. TYLENOL [Concomitant]
     Active Substance: ACETAMINOPHEN
  12. PETHIDINE [Concomitant]
     Active Substance: MEPERIDINE

REACTIONS (1)
  - Death [Fatal]
